FAERS Safety Report 8317037-2 (Version None)
Quarter: 2012Q2

REPORT INFORMATION
  Report Type: 
  Country: None (occurrence: None)
  Receive Date: 20120427
  Receipt Date: 20120423
  Transmission Date: 20120825
  Serious: Yes (Other)
  Sender: FDA-Public Use
  Company Number: US-PFIZER INC-2012100278

PATIENT
  Sex: Female
  Weight: 86.16 kg

DRUGS (5)
  1. CRESTOR [Concomitant]
     Dosage: 10 MG, 1X/DAY
  2. PRILOSEC [Concomitant]
     Dosage: 20 MG, 1X/DAY
  3. ASPIRIN [Concomitant]
     Dosage: UNK, 1X/DAY
  4. NEURONTIN [Suspect]
     Indication: HYPOAESTHESIA
     Dosage: 100 MG, 1X/DAY
     Route: 048
  5. CALCIUM [Concomitant]
     Dosage: UNK,1X/DAY

REACTIONS (2)
  - CATARACT [None]
  - VISUAL IMPAIRMENT [None]
